FAERS Safety Report 5512778-4 (Version None)
Quarter: 2007Q4

REPORT INFORMATION
  Report Type: 
  Country: None (occurrence: None)
  Receive Date: 20071112
  Receipt Date: 20071029
  Transmission Date: 20080405
  Serious: Yes (Other)
  Sender: FDA-Public Use
  Company Number: TR-AMGEN-US108822

PATIENT
  Age: 17 Year
  Sex: Female

DRUGS (3)
  1. ENBREL [Suspect]
     Indication: JUVENILE ARTHRITIS
     Route: 058
     Dates: start: 20030101
  2. VIOXX [Concomitant]
     Dosage: UNKNOWN
     Route: 048
  3. ALENDRONATE SODIUM [Concomitant]
     Dosage: UNKNOWN
     Route: 048

REACTIONS (1)
  - OPTIC NEURITIS [None]
